FAERS Safety Report 11242171 (Version 1)
Quarter: 2015Q3

REPORT INFORMATION
  Report Type: Spontaneous
  Country: IT (occurrence: IT)
  Receive Date: 20150707
  Receipt Date: 20150707
  Transmission Date: 20151125
  Serious: Yes (Hospitalization)
  Sender: FDA-Public Use
  Company Number: IT-JNJFOC-20150623560

PATIENT
  Age: 0 Day
  Sex: Female
  Weight: 69 kg

DRUGS (2)
  1. MINOXIDIL. [Suspect]
     Active Substance: MINOXIDIL
     Indication: ACCIDENTAL EXPOSURE TO PRODUCT
     Route: 048
     Dates: start: 20150327, end: 20150327
  2. MINOXIDIL. [Suspect]
     Active Substance: MINOXIDIL
     Route: 048

REACTIONS (4)
  - Visual impairment [Recovered/Resolved]
  - Accidental exposure to product [Recovered/Resolved]
  - Hypotension [Recovered/Resolved]
  - Incorrect route of drug administration [Recovered/Resolved]

NARRATIVE: CASE EVENT DATE: 20150327
